FAERS Safety Report 16138622 (Version 2)
Quarter: 2019Q2

REPORT INFORMATION
  Report Type: Spontaneous
  Country: HU (occurrence: HU)
  Receive Date: 20190330
  Receipt Date: 20190405
  Transmission Date: 20190711
  Serious: Yes (Other)
  Sender: FDA-Public Use
  Company Number: HU-ACCORD-117286

PATIENT
  Age: 48 Year
  Sex: Female

DRUGS (9)
  1. FOLINIC ACID [Suspect]
     Active Substance: LEUCOVORIN
     Indication: OVARIAN CANCER STAGE IV
     Dosage: 11 CYCLES, ALSO RECEIVED 11 CYCLES FROM OCT-2013, ALSO RECEIVED 11 CYCLES ON UNK DATE
     Route: 065
  2. FLUOROURACIL. [Suspect]
     Active Substance: FLUOROURACIL
     Indication: OVARIAN CANCER
     Dosage: 11 CYCLES, ALSO RECEIVED 11 CYCLES ADDITIONALLY
     Route: 065
     Dates: start: 201310
  3. CISPLATIN. [Suspect]
     Active Substance: CISPLATIN
     Indication: OVARIAN CANCER STAGE IV
     Dosage: 6 CYCLES, ALSO RECEIVED 6 CYCLES FROM FEB-2012 TO JUL-2012
     Route: 065
     Dates: start: 201201
  4. ETOPOSIDE. [Suspect]
     Active Substance: ETOPOSIDE
     Indication: OVARIAN CANCER STAGE IV
     Dosage: 6 CYCLES, ALSO RECEIVED 6 CYCLES FROM FEB-2012 TO JUL-2012
     Route: 065
     Dates: start: 201201
  5. IFOSFAMIDE. [Suspect]
     Active Substance: IFOSFAMIDE
     Indication: OVARIAN CANCER STAGE IV
     Dosage: 6 CYCLES, ALSO RECEIVED 6 CYCLES FROM FEB-2012 TO JUL-2012
     Route: 065
     Dates: start: 201201
  6. BEVACIZUMAB. [Suspect]
     Active Substance: BEVACIZUMAB
     Indication: OVARIAN CANCER STAGE IV
     Dosage: 4 CYCLES
     Route: 065
  7. LEUCOVORIN. [Suspect]
     Active Substance: LEUCOVORIN
     Indication: OVARIAN CANCER STAGE IV
     Route: 065
  8. OXALIPLATIN. [Suspect]
     Active Substance: OXALIPLATIN
     Indication: OVARIAN CANCER
     Dosage: 11 CYCLES
     Route: 065
     Dates: start: 201310
  9. FOLINIC ACID [Suspect]
     Active Substance: LEUCOVORIN
     Indication: OVARIAN CANCER
     Dosage: 11 CYCLES
     Route: 065
     Dates: start: 201310

REACTIONS (21)
  - Malaise [Unknown]
  - Asthenia [Unknown]
  - Neuropathy peripheral [Unknown]
  - Thrombocytopenia [Recovered/Resolved]
  - White blood cell count decreased [Unknown]
  - Fatigue [Unknown]
  - Feeling abnormal [Unknown]
  - Diarrhoea [Unknown]
  - Disease progression [Unknown]
  - Off label use [Unknown]
  - Neutropenia [Recovered/Resolved]
  - Thrombocytopenic purpura [Unknown]
  - Therapeutic product effect incomplete [Unknown]
  - Platelet count decreased [Unknown]
  - Nausea [Unknown]
  - Abdominal pain [Unknown]
  - Purpura [Recovered/Resolved]
  - Neuralgia [Unknown]
  - Haemoglobin decreased [Recovered/Resolved]
  - Metastases to lymph nodes [Unknown]
  - Vomiting [Unknown]

NARRATIVE: CASE EVENT DATE: 2012
